FAERS Safety Report 6896586-8 (Version None)
Quarter: 2010Q3

REPORT INFORMATION
  Report Type: 
  Country: None (occurrence: None)
  Receive Date: 20100802
  Receipt Date: 20070312
  Transmission Date: 20110219
  Serious: No
  Sender: FDA-Public Use
  Company Number: US-PFIZER INC-2007003427

PATIENT
  Sex: Female
  Weight: 58.97 kg

DRUGS (3)
  1. LYRICA [Suspect]
     Indication: COMPLEX REGIONAL PAIN SYNDROME
     Dates: start: 20060101
  2. METHADONE HCL [Concomitant]
  3. XANAX [Concomitant]

REACTIONS (2)
  - DRUG SCREEN POSITIVE [None]
  - PAIN [None]
